FAERS Safety Report 13884729 (Version 1)
Quarter: 2017Q3

REPORT INFORMATION
  Report Type: Spontaneous
  Country: US (occurrence: US)
  Receive Date: 20170821
  Receipt Date: 20170821
  Transmission Date: 20171127
  Serious: Yes (Other)
  Sender: FDA-Public Use
  Company Number: US-ZYDUS-016101

PATIENT
  Age: 46 Year
  Sex: Male

DRUGS (3)
  1. CYTARABINE/CYTARABINE HYDROCHLORIDE/CYTARABINE OCFOSFATE [Suspect]
     Active Substance: CYTARABINE
     Indication: CHEMOTHERAPY
     Dosage: 1 G/M2 EVERY 12 H (16 G/M2 (TOTAL DOSE 36 G) IN CYCLE 2)
     Route: 065
  2. CYTARABINE/CYTARABINE HYDROCHLORIDE/CYTARABINE OCFOSFATE [Suspect]
     Active Substance: CYTARABINE
     Indication: CHEMOTHERAPY
     Dosage: 3 G/M2 EVERY 12 H
     Route: 065
  3. METHOTREXATE. [Suspect]
     Active Substance: METHOTREXATE
     Indication: CHEMOTHERAPY
     Route: 065

REACTIONS (20)
  - Cerebellar syndrome [Recovering/Resolving]
  - Dizziness [Recovered/Resolved]
  - Dysphagia [Recovered/Resolved]
  - Chills [Unknown]
  - Neurotoxicity [None]
  - Disturbance in attention [Recovered/Resolved]
  - Dysmetria [Recovered/Resolved]
  - Gait disturbance [Recovering/Resolving]
  - Ataxia [Recovering/Resolving]
  - Nystagmus [Recovered/Resolved]
  - Neutropenic sepsis [None]
  - Renal failure [Unknown]
  - Gait inability [Recovered/Resolved]
  - Blood creatinine increased [Unknown]
  - Pyrexia [Recovered/Resolved]
  - Clostridium colitis [None]
  - Dysarthria [Recovering/Resolving]
  - CSF glucose increased [None]
  - Encephalopathy [Recovered/Resolved]
  - Confusional state [Recovered/Resolved]
